FAERS Safety Report 20543471 (Version 2)
Quarter: 2022Q2

REPORT INFORMATION
  Report Type: Spontaneous
  Country: US (occurrence: None)
  Receive Date: 20220302
  Receipt Date: 20220405
  Transmission Date: 20220721
  Serious: Yes (Other)
  Sender: FDA-Public Use
  Company Number: 2022A088416

PATIENT
  Age: 21386 Day
  Sex: Male
  Weight: 119.7 kg

DRUGS (16)
  1. FARXIGA [Suspect]
     Active Substance: DAPAGLIFLOZIN PROPANEDIOL
     Indication: Type 2 diabetes mellitus
     Dosage: PRESCRIBED FARXIGA 5MG FOR A FEW WEEKS, THEN IT WENT UP TO 10MG
     Route: 048
     Dates: end: 202111
  2. ROSUVASTATIN CALCIUM [Suspect]
     Active Substance: ROSUVASTATIN CALCIUM
     Route: 048
  3. LINACLOTIDE [Concomitant]
     Active Substance: LINACLOTIDE
     Dosage: 290 MCG
     Route: 048
  4. LOSARTAN POTASSIUM [Concomitant]
     Active Substance: LOSARTAN POTASSIUM
  5. VILANTEROL/UMECLIDINIUM [Concomitant]
  6. ACETAMINOPHEN\HYDROCODONE BITARTRATE [Concomitant]
     Active Substance: ACETAMINOPHEN\HYDROCODONE BITARTRATE
  7. ALPRAZOLAM [Concomitant]
     Active Substance: ALPRAZOLAM
  8. ASPIRIN [Concomitant]
     Active Substance: ASPIRIN
  9. MONTELIKAST SODIUM [Concomitant]
  10. AMPRAZOLAM [Concomitant]
  11. INSULIN LISPRO [Concomitant]
     Active Substance: INSULIN LISPRO
  12. INSULIN PEN NEEDLE [Concomitant]
  13. ALBUTEROL SULFATE [Concomitant]
     Active Substance: ALBUTEROL SULFATE
  14. HYDROCHLOROTHIAZIDE [Concomitant]
     Active Substance: HYDROCHLOROTHIAZIDE
  15. INSULIN DEGLUDEC [Concomitant]
     Active Substance: INSULIN DEGLUDEC
  16. AMITRIPTYLINE [Concomitant]
     Active Substance: AMITRIPTYLINE
     Route: 048

REACTIONS (3)
  - Bladder transitional cell carcinoma [Not Recovered/Not Resolved]
  - Haematuria [Not Recovered/Not Resolved]
  - Pneumocystis jirovecii pneumonia [Unknown]

NARRATIVE: CASE EVENT DATE: 20211202
